FAERS Safety Report 9130997 (Version 1)
Quarter: 2013Q1

REPORT INFORMATION
  Report Type: Spontaneous
  Country: BR (occurrence: BR)
  Receive Date: 20130301
  Receipt Date: 20130301
  Transmission Date: 20140127
  Serious: Yes (Hospitalization)
  Sender: FDA-Public Use
  Company Number: BR-PFIZER INC-2013070755

PATIENT
  Age: 46 Year
  Sex: Female
  Weight: 76 kg

DRUGS (6)
  1. FRONTAL [Suspect]
     Indication: DEPRESSION
     Dosage: 0.25MG (ONE TABLET), UNSPECIFIED FREQUENCY
     Route: 048
     Dates: start: 2012, end: 201301
  2. FRONTAL [Suspect]
     Dosage: 0.5 MG (ONE TABLET), 1X/DAY
     Route: 048
     Dates: start: 201301
  3. DOMPERIDONE [Concomitant]
     Indication: CONSTIPATION
     Dosage: TWO TABLETS DAILY, UNSPECIFIED FREQUENCY
     Dates: start: 201205
  4. LAMITOR [Concomitant]
     Indication: AFFECTIVE DISORDER
     Dosage: THREE TABLETS DAILY, UNSPECIFIED FREQUENCY
     Dates: start: 201301
  5. PANTOPRAZOLE [Concomitant]
     Indication: GASTRIC DISORDER
     Dosage: 40 MG, 1X/DAY
     Dates: start: 201205
  6. PROCIMAX [Concomitant]
     Indication: ANTIDEPRESSANT THERAPY
     Dosage: 20 MG, 1X/DAY
     Dates: start: 201301

REACTIONS (2)
  - Obesity [Unknown]
  - Somnolence [Not Recovered/Not Resolved]
